FAERS Safety Report 9859835 (Version 2)
Quarter: 2014Q1

REPORT INFORMATION
  Report Type: Report from Study
  Country: US (occurrence: US)
  Receive Date: 20140131
  Receipt Date: 20140131
  Transmission Date: 20141002
  Serious: Yes (Other)
  Sender: FDA-Public Use
  Company Number: US-US-EMD SERONO, INC.-7233250

PATIENT
  Age: 57 Year
  Sex: Male

DRUGS (2)
  1. REBIF [Suspect]
     Indication: PRODUCT USED FOR UNKNOWN INDICATION
     Route: 058
     Dates: start: 20110420
  2. IBUPROFEN [Concomitant]
     Indication: HEADACHE

REACTIONS (4)
  - Penis disorder [Unknown]
  - Post procedural haemorrhage [Unknown]
  - Influenza like illness [Unknown]
  - Headache [Unknown]
